FAERS Safety Report 7994935-0 (Version None)
Quarter: 2011Q4

REPORT INFORMATION
  Report Type: 
  Country: None (occurrence: None)
  Receive Date: 20111220
  Receipt Date: 20111214
  Transmission Date: 20120403
  Serious: Yes (Other)
  Sender: FDA-Public Use
  Company Number: JP-ROCHE-773613

PATIENT
  Sex: Male
  Weight: 58 kg

DRUGS (16)
  1. CARVEDILOL [Concomitant]
     Route: 048
  2. ACTEMRA [Suspect]
     Route: 041
     Dates: start: 20081211, end: 20081211
  3. ACTEMRA [Suspect]
     Route: 041
     Dates: start: 20090108, end: 20090108
  4. ACTEMRA [Suspect]
     Route: 041
     Dates: start: 20090205, end: 20090205
  5. ACTEMRA [Suspect]
     Route: 041
     Dates: start: 20090402, end: 20090402
  6. ACTEMRA [Suspect]
     Route: 041
     Dates: start: 20090521, end: 20090521
  7. ACTEMRA [Suspect]
     Route: 041
     Dates: start: 20090618, end: 20090618
  8. ACTONEL [Concomitant]
     Indication: OSTEOPOROSIS
     Route: 048
  9. ACTEMRA [Suspect]
     Route: 041
     Dates: start: 20090501, end: 20090501
  10. ISONIAZID [Concomitant]
     Indication: ANTIBIOTIC PROPHYLAXIS
     Route: 048
  11. CELECOXIB [Concomitant]
     Indication: RHEUMATOID ARTHRITIS
     Route: 048
  12. RABEPRAZOLE SODIUM [Concomitant]
     Indication: GASTRIC ULCER
     Route: 048
  13. ACTEMRA [Suspect]
     Indication: RHEUMATOID ARTHRITIS
     Route: 041
     Dates: start: 20081113, end: 20081113
  14. ACTEMRA [Suspect]
     Route: 041
     Dates: start: 20090305, end: 20090305
  15. PYDOXAL [Concomitant]
     Indication: PROPHYLAXIS
     Route: 048
  16. PREDNISOLONE [Concomitant]
     Indication: RHEUMATOID ARTHRITIS
     Route: 048

REACTIONS (1)
  - RADIUS FRACTURE [None]
